FAERS Safety Report 7384041-0 (Version None)
Quarter: 2011Q1

REPORT INFORMATION
  Report Type: 
  Country: None (occurrence: None)
  Receive Date: 20110322
  Receipt Date: 20110310
  Transmission Date: 20110831
  Serious: Yes (Hospitalization)
  Sender: FDA-Public Use
  Company Number: 002770

PATIENT
  Sex: Female

DRUGS (11)
  1. ENALAPRIL MALEATE [Concomitant]
  2. METHOTREXATE SODIUM [Concomitant]
  3. ATENOLOL [Concomitant]
  4. ACETAMINOPHEN [Concomitant]
  5. CERTOLIZUMAB PEGOL [Suspect]
     Indication: RHEUMATOID ARTHRITIS
     Dosage: 400, 200 MG 1X2 WEEKS, SUBCUTANEOUS
     Route: 058
     Dates: start: 20091103, end: 20091117
  6. CERTOLIZUMAB PEGOL [Suspect]
     Indication: RHEUMATOID ARTHRITIS
     Dosage: 400, 200 MG 1X2 WEEKS, SUBCUTANEOUS
     Route: 058
     Dates: start: 20091006, end: 20091020
  7. HYDROCHLROTHIAZIDE [Concomitant]
  8. FELDENE [Concomitant]
  9. OMEPRAZOLE [Concomitant]
  10. CALCIUM [Concomitant]
  11. FOLIC ACID [Concomitant]

REACTIONS (8)
  - CHRONIC OBSTRUCTIVE PULMONARY DISEASE [None]
  - PCO2 INCREASED [None]
  - BLOOD PH DECREASED [None]
  - AORTIC VALVE INCOMPETENCE [None]
  - SINUS TACHYCARDIA [None]
  - CONDITION AGGRAVATED [None]
  - ATRIAL FIBRILLATION [None]
  - NASAL CONGESTION [None]
